FAERS Safety Report 4611107-8 (Version None)
Quarter: 2005Q1

REPORT INFORMATION
  Report Type: 
  Country: None (occurrence: None)
  Receive Date: 20050316
  Receipt Date: 20050316
  Transmission Date: 20050727
  Serious: No
  Sender: FDA-Public Use
  Company Number: None

PATIENT
  Age: 60 Year
  Sex: Male
  Weight: 71.9 kg

DRUGS (7)
  1. TEQUIN [Suspect]
  2. SIMVASTATIN [Concomitant]
  3. POTASSIUM CHLORIDE [Concomitant]
  4. TRAMADOL HCL [Concomitant]
  5. ALENDRINATE [Concomitant]
  6. FLUDOXETINE HCL [Concomitant]
  7. LISINOPRIL [Concomitant]

REACTIONS (1)
  - CONVULSION [None]
